FAERS Safety Report 6238604-6 (Version None)
Quarter: 2009Q2

REPORT INFORMATION
  Report Type: 
  Country: None (occurrence: None)
  Receive Date: 20090622
  Receipt Date: 20090616
  Transmission Date: 20091009
  Serious: Yes (Other)
  Sender: FDA-Public Use
  Company Number: IL-PFIZER INC-2009156983

PATIENT
  Age: 75 Year

DRUGS (4)
  1. DETRUSITOL SR [Suspect]
     Indication: URGE INCONTINENCE
     Route: 048
     Dates: start: 20081201
  2. COZAAR [Concomitant]
     Indication: HYPERTENSION
  3. CAEDAX [Concomitant]
     Indication: HYPERTENSION
     Dosage: 2 MG, UNK
  4. NORMALOL [Concomitant]
     Indication: HYPERTENSION

REACTIONS (1)
  - BLOOD PRESSURE INCREASED [None]
